FAERS Safety Report 13087483 (Version 1)
Quarter: 2017Q1

REPORT INFORMATION
  Report Type: Other
  Country: AU (occurrence: AU)
  Receive Date: 20170105
  Receipt Date: 20170105
  Transmission Date: 20170428
  Serious: Yes (Other)
  Sender: FDA-Public Use
  Company Number: AU-LUPIN PHARMACEUTICALS INC.-2017-00070

PATIENT
  Age: 65 Year
  Sex: Female

DRUGS (2)
  1. VANCOMYCIN [Suspect]
     Active Substance: VANCOMYCIN
     Indication: INTRAOPERATIVE CARE
  2. TRIESENCE [Suspect]
     Active Substance: TRIAMCINOLONE ACETONIDE
     Indication: INTRAOPERATIVE CARE
     Route: 065

REACTIONS (2)
  - Retinal vasculitis [Recovered/Resolved]
  - Haemorrhagic vasculitis [Recovered/Resolved]
